FAERS Safety Report 20906522 (Version 1)
Quarter: 2022Q2

REPORT INFORMATION
  Report Type: Spontaneous
  Country: US (occurrence: None)
  Receive Date: 20220602
  Receipt Date: 20220602
  Transmission Date: 20220721
  Serious: Yes (Life-Threatening, Hospitalization, Other)
  Sender: FDA-Public Use
  Company Number: None

PATIENT
  Age: 44 Year
  Sex: Female
  Weight: 63 kg

DRUGS (8)
  1. HERBALS\MITRAGYNINE [Suspect]
     Active Substance: HERBALS\MITRAGYNINE
     Indication: Rheumatoid arthritis
     Dosage: OTHER QUANTITY : 2 TABLESPOON(S);?FREQUENCY : AS NEEDED;?
     Route: 048
     Dates: start: 20180301, end: 20220501
  2. CLONIDINE [Concomitant]
     Active Substance: CLONIDINE
  3. BUSPIRONE [Concomitant]
     Active Substance: BUSPIRONE HYDROCHLORIDE
  4. AMBIEN [Concomitant]
     Active Substance: ZOLPIDEM TARTRATE
  5. SEROQUEL [Concomitant]
     Active Substance: QUETIAPINE FUMARATE
  6. NEXIUM [Concomitant]
     Active Substance: ESOMEPRAZOLE MAGNESIUM
  7. LUFLUNOMIDE [Concomitant]
  8. VITAMINS [Concomitant]
     Active Substance: VITAMINS

REACTIONS (5)
  - Unresponsive to stimuli [None]
  - Toxicity to various agents [None]
  - Respiratory depression [None]
  - Withdrawal syndrome [None]
  - Hypertension [None]

NARRATIVE: CASE EVENT DATE: 20220112
